FAERS Safety Report 11329464 (Version 6)
Quarter: 2025Q2

REPORT INFORMATION
  Report Type: Spontaneous
  Country: FI (occurrence: FI)
  Receive Date: 20150803
  Receipt Date: 20250529
  Transmission Date: 20250717
  Serious: Yes (Other)
  Sender: ACCORD
  Company Number: FI-ACCORD-032709

PATIENT
  Age: 0 Year
  Sex: Male
  Weight: 2.21 kg

DRUGS (37)
  1. LEVETIRACETAM [Suspect]
     Active Substance: LEVETIRACETAM
     Route: 063
  2. ENOXAPARIN [Suspect]
     Active Substance: ENOXAPARIN
     Dosage: 40 MG, 2X/DAY (BID)
     Route: 063
     Dates: start: 20120729
  3. LACOSAMIDE [Suspect]
     Active Substance: LACOSAMIDE
     Dosage: ON DAY 4, 300 MG (TRANSMAMMARY)100 MG, 2X/DAY (BID)
     Route: 063
     Dates: start: 20120730
  4. KEPPRA [Suspect]
     Active Substance: LEVETIRACETAM
     Route: 063
  5. LABETALOL HYDROCHLORIDE [Concomitant]
     Active Substance: LABETALOL HYDROCHLORIDE
     Dosage: 100 MG, 2X/DAY (BID)
     Route: 063
     Dates: start: 20120817, end: 20130206
  6. AMOXICILLIN\CLAVULANIC ACID [Concomitant]
     Active Substance: AMOXICILLIN\CLAVULANIC ACID
     Route: 063
     Dates: start: 20120820, end: 20120828
  7. ATIVAN [Concomitant]
     Active Substance: LORAZEPAM
     Route: 063
  8. CEFTRIAXONE SODIUM [Concomitant]
     Active Substance: CEFTRIAXONE SODIUM
     Route: 063
  9. DIAZEPAM [Concomitant]
     Active Substance: DIAZEPAM
     Route: 063
  10. FOLVITE [Concomitant]
     Active Substance: FOLIC ACID
     Dosage: 4 MG, ONCE DAILY (QD)
     Route: 063
     Dates: start: 20120816, end: 20130206
  11. FOSPHENYTOIN [Concomitant]
     Active Substance: FOSPHENYTOIN
     Dosage: ON DAY 4, 600 MG
     Route: 063
  12. HEPARIN [Concomitant]
     Active Substance: HEPARIN SODIUM
     Route: 063
     Dates: start: 20120728, end: 20120729
  13. PHENYTOIN [Concomitant]
     Active Substance: PHENYTOIN
     Route: 063
     Dates: start: 20120814, end: 20120910
  14. ENOXAPARIN [Concomitant]
     Active Substance: ENOXAPARIN
     Dosage: 40 MG, 2X/DAY (BID)
     Route: 063
     Dates: start: 20120729, end: 20130206
  15. LABETALOL [Concomitant]
     Active Substance: LABETALOL
     Route: 063
  16. DIETARY SUPPLEMENT\PROBIOTICS [Concomitant]
     Active Substance: DIETARY SUPPLEMENT\PROBIOTICS NOS
     Route: 063
     Dates: start: 20120820, end: 20120824
  17. LORAZEPAM [Concomitant]
     Active Substance: LORAZEPAM
     Route: 063
  18. MIDAZOLAM [Concomitant]
     Active Substance: MIDAZOLAM
     Route: 063
  19. FOSPHENYTOIN SODIUM [Concomitant]
     Active Substance: FOSPHENYTOIN SODIUM
     Dosage: 250 MG, 2X/DAY (BID)
     Route: 063
     Dates: start: 20120729, end: 20120814
  20. PROPOFOL [Concomitant]
     Active Substance: PROPOFOL
     Route: 063
  21. OBSIDAN [Concomitant]
     Route: 063
     Dates: start: 20120815, end: 20120903
  22. PANTOPRAZOLE SODIUM [Concomitant]
     Active Substance: PANTOPRAZOLE SODIUM
     Route: 063
     Dates: start: 20120629, end: 20120814
  23. DIAZEPAM [Concomitant]
     Active Substance: DIAZEPAM
     Route: 063
  24. PIPERACILLIN SODIUM\TAZOBACTAM SODIUM [Concomitant]
     Active Substance: PIPERACILLIN SODIUM\TAZOBACTAM SODIUM
     Route: 063
     Dates: start: 20120830
  25. ENOXAPARIN [Concomitant]
     Active Substance: ENOXAPARIN
     Dosage: 40 MG, 2X/DAY (BID)
     Dates: start: 20130206, end: 201302
  26. FOLVITE [Concomitant]
     Active Substance: FOLIC ACID
     Dosage: 4 MG, ONCE DAILY (QD)
     Dates: start: 20130216, end: 201302
  27. LABETALOL HYDROCHLORIDE [Concomitant]
     Active Substance: LABETALOL HYDROCHLORIDE
     Dosage: 100 MG, 2X/DAY (BID)
     Dates: start: 20130206, end: 201302
  28. KEPPRA [Suspect]
     Active Substance: LEVETIRACETAM
     Dosage: 1000 MG, 2X/DAY (BID)
     Route: 063
     Dates: start: 20120729
  29. PROPOFOL [Concomitant]
     Active Substance: PROPOFOL
     Route: 063
  30. ENOXAPARIN [Suspect]
     Active Substance: ENOXAPARIN
     Dosage: 60 MG, 2X/DAY (BID)
     Route: 063
     Dates: start: 20120729
  31. ENOXAPARIN [Suspect]
     Active Substance: ENOXAPARIN
     Route: 063
     Dates: start: 20120729
  32. KEPPRA [Suspect]
     Active Substance: LEVETIRACETAM
     Route: 063
  33. KEPPRA [Suspect]
     Active Substance: LEVETIRACETAM
     Route: 063
  34. LACOSAMIDE [Suspect]
     Active Substance: LACOSAMIDE
     Route: 063
  35. LACOSAMIDE [Suspect]
     Active Substance: LACOSAMIDE
     Dosage: 150 MG, 2X/DAY (BID)
     Route: 063
     Dates: start: 201207, end: 201207
  36. OBSIDAN [Concomitant]
     Route: 063
     Dates: start: 20120815, end: 20120903
  37. FOSPHENYTOIN SODIUM [Concomitant]
     Active Substance: FOSPHENYTOIN SODIUM
     Route: 063

REACTIONS (6)
  - Poor feeding infant [Recovered/Resolved]
  - Somnolence [Recovered/Resolved]
  - Foetal exposure during pregnancy [Unknown]
  - Maternal exposure during breast feeding [Recovered/Resolved]
  - Low birth weight baby [Unknown]
  - Premature baby [Recovered/Resolved]

NARRATIVE: CASE EVENT DATE: 20120701
